FAERS Safety Report 7210217-9 (Version None)
Quarter: 2010Q4

REPORT INFORMATION
  Report Type: 
  Country: None (occurrence: None)
  Receive Date: 20101223
  Receipt Date: 20101210
  Transmission Date: 20110411
  Serious: Yes (Hospitalization)
  Sender: FDA-Public Use
  Company Number: 015864

PATIENT
  Age: 44 Year
  Sex: Female

DRUGS (4)
  1. VERAPAMIL HYDROCHLORIDE [Suspect]
     Indication: INTENTIONAL OVERDOSE
     Dosage: , ORAL
  2. CLONAZEPAM [Suspect]
     Indication: INTENTIONAL OVERDOSE
     Dosage: , ORAL
  3. ETHANOL (ETHANOL) [Suspect]
     Indication: INTENTIONAL OVERDOSE
  4. OXYCODONE W/PARACETAMOL (OXYCODONE, PARACETAMOL) [Suspect]
     Indication: INTENTIONAL OVERDOSE
     Dosage: , ORAL
     Route: 048

REACTIONS (12)
  - BODY TEMPERATURE DECREASED [None]
  - DEPRESSED LEVEL OF CONSCIOUSNESS [None]
  - HAEMODYNAMIC INSTABILITY [None]
  - HYPERGLYCAEMIA [None]
  - HYPOTENSION [None]
  - LIPASE INCREASED [None]
  - MULTIPLE DRUG OVERDOSE [None]
  - MYDRIASIS [None]
  - NODAL RHYTHM [None]
  - PUPILLARY REFLEX IMPAIRED [None]
  - RESPIRATORY RATE INCREASED [None]
  - WHITE BLOOD CELL COUNT INCREASED [None]
